FAERS Safety Report 14581597 (Version 1)
Quarter: 2018Q1

REPORT INFORMATION
  Report Type: Spontaneous
  Country: DE (occurrence: DE)
  Receive Date: 20180228
  Receipt Date: 20180228
  Transmission Date: 20180509
  Serious: Yes (Hospitalization, Disabling, Other)
  Sender: FDA-Public Use
  Company Number: DE-AUROBINDO-AUR-APL-2018-006673

PATIENT
  Age: 78 Year
  Sex: Female

DRUGS (3)
  1. CALCIUM WITH VITAMIN D             /00944201/ [Concomitant]
     Active Substance: CALCIUM CARBONATE\CHOLECALCIFEROL
     Indication: OSTEOPOROSIS
     Dosage: DAILY DOSE: 1 DF DOSAGE FORM EVERY 3 MONTHS
     Route: 048
     Dates: start: 2007
  2. RISEDRONATE FILM-COATED TABLET [Suspect]
     Active Substance: RISEDRONATE SODIUM
     Indication: OSTEOPOROSIS
     Dosage: DAILY DOSE: 35 MG MILLIGRAM(S) EVERY WEEK
     Route: 048
     Dates: start: 200407, end: 200711
  3. IBANDRONATE SODIUM. [Suspect]
     Active Substance: IBANDRONATE SODIUM
     Indication: OSTEOPOROSIS
     Dosage: DAILY DOSE: 35 MG MILLIGRAM(S) EVERY WEEK
     Route: 042
     Dates: start: 200711, end: 2016

REACTIONS (2)
  - Osteonecrosis [Recovered/Resolved with Sequelae]
  - Osteonecrosis of jaw [Recovered/Resolved with Sequelae]

NARRATIVE: CASE EVENT DATE: 201511
